FAERS Safety Report 25548180 (Version 2)
Quarter: 2025Q3

REPORT INFORMATION
  Report Type: Report from Study
  Country: CO (occurrence: CO)
  Receive Date: 20250714
  Receipt Date: 20250825
  Transmission Date: 20251020
  Serious: Yes (Other)
  Sender: MYLAN
  Company Number: CO-MYLANLABS-2025M1058256

PATIENT
  Age: 6 Year
  Sex: Female
  Weight: 18 kg

DRUGS (56)
  1. CYSTAGON [Suspect]
     Active Substance: CYSTEAMINE BITARTRATE
     Indication: Cystinosis
     Dosage: 150 MILLIGRAM, Q6H (EVERY 6 HOURS)
     Dates: start: 20181001
  2. CYSTAGON [Suspect]
     Active Substance: CYSTEAMINE BITARTRATE
     Dosage: 150 MILLIGRAM, Q6H (EVERY 6 HOURS)
     Dates: start: 20181001
  3. CYSTAGON [Suspect]
     Active Substance: CYSTEAMINE BITARTRATE
     Dosage: 150 MILLIGRAM, Q6H (EVERY 6 HOURS)
     Route: 048
     Dates: start: 20181001
  4. CYSTAGON [Suspect]
     Active Substance: CYSTEAMINE BITARTRATE
     Dosage: 150 MILLIGRAM, Q6H (EVERY 6 HOURS)
     Route: 048
     Dates: start: 20181001
  5. CYSTAGON [Suspect]
     Active Substance: CYSTEAMINE BITARTRATE
     Dosage: 300 MILLIGRAM, BID (6 AM AND 6 PM)
     Route: 048
  6. CYSTAGON [Suspect]
     Active Substance: CYSTEAMINE BITARTRATE
     Dosage: 300 MILLIGRAM, BID (6 AM AND 6 PM)
     Route: 048
  7. CYSTAGON [Suspect]
     Active Substance: CYSTEAMINE BITARTRATE
     Dosage: 300 MILLIGRAM, BID (6 AM AND 6 PM)
  8. CYSTAGON [Suspect]
     Active Substance: CYSTEAMINE BITARTRATE
     Dosage: 300 MILLIGRAM, BID (6 AM AND 6 PM)
  9. CYSTAGON [Suspect]
     Active Substance: CYSTEAMINE BITARTRATE
     Dosage: 150 MILLIGRAM, BID (12 MERIDIAN AND 12 MIDNIGHT)
     Route: 048
     Dates: start: 202202
  10. CYSTAGON [Suspect]
     Active Substance: CYSTEAMINE BITARTRATE
     Dosage: 150 MILLIGRAM, BID (12 MERIDIAN AND 12 MIDNIGHT)
     Route: 048
     Dates: start: 202202
  11. CYSTAGON [Suspect]
     Active Substance: CYSTEAMINE BITARTRATE
     Dosage: 150 MILLIGRAM, BID (12 MERIDIAN AND 12 MIDNIGHT)
     Dates: start: 202202
  12. CYSTAGON [Suspect]
     Active Substance: CYSTEAMINE BITARTRATE
     Dosage: 150 MILLIGRAM, BID (12 MERIDIAN AND 12 MIDNIGHT)
     Dates: start: 202202
  13. CYSTAGON [Suspect]
     Active Substance: CYSTEAMINE BITARTRATE
     Dosage: 300 MILLIGRAM, Q8H (EVERY 8 HOURS)
     Dates: start: 20231114
  14. CYSTAGON [Suspect]
     Active Substance: CYSTEAMINE BITARTRATE
     Dosage: 300 MILLIGRAM, Q8H (EVERY 8 HOURS)
     Dates: start: 20231114
  15. CYSTAGON [Suspect]
     Active Substance: CYSTEAMINE BITARTRATE
     Dosage: 300 MILLIGRAM, Q8H (EVERY 8 HOURS)
     Route: 048
     Dates: start: 20231114
  16. CYSTAGON [Suspect]
     Active Substance: CYSTEAMINE BITARTRATE
     Dosage: 300 MILLIGRAM, Q8H (EVERY 8 HOURS)
     Route: 048
     Dates: start: 20231114
  17. CYSTEAMINE HYDROCHLORIDE [Suspect]
     Active Substance: CYSTEAMINE HYDROCHLORIDE
     Indication: Cystinosis
     Dosage: 2 GTT DROPS, Q6H (EVERY 6 HOURS)
     Dates: start: 20190323
  18. CYSTEAMINE HYDROCHLORIDE [Suspect]
     Active Substance: CYSTEAMINE HYDROCHLORIDE
     Dosage: 2 GTT DROPS, Q6H (EVERY 6 HOURS)
     Route: 047
     Dates: start: 20190323
  19. CYSTEAMINE HYDROCHLORIDE [Suspect]
     Active Substance: CYSTEAMINE HYDROCHLORIDE
     Dosage: 2 GTT DROPS, Q6H (EVERY 6 HOURS)
     Route: 047
     Dates: start: 20190323
  20. CYSTEAMINE HYDROCHLORIDE [Suspect]
     Active Substance: CYSTEAMINE HYDROCHLORIDE
     Dosage: 2 GTT DROPS, Q6H (EVERY 6 HOURS)
     Dates: start: 20190323
  21. LOSARTAN [Concomitant]
     Active Substance: LOSARTAN
     Indication: Hypertension
     Dosage: 25 MILLIGRAM, QD (EVERY 24 HOURS)
  22. LOSARTAN [Concomitant]
     Active Substance: LOSARTAN
     Dosage: 25 MILLIGRAM, QD (EVERY 24 HOURS)
     Route: 065
  23. LOSARTAN [Concomitant]
     Active Substance: LOSARTAN
     Dosage: 25 MILLIGRAM, QD (EVERY 24 HOURS)
     Route: 065
  24. LOSARTAN [Concomitant]
     Active Substance: LOSARTAN
     Dosage: 25 MILLIGRAM, QD (EVERY 24 HOURS)
  25. CALCITRIOL [Concomitant]
     Active Substance: CALCITRIOL
     Dosage: 0.25 MICROGRAM, QD (EVERY 24 HOURS)
  26. CALCITRIOL [Concomitant]
     Active Substance: CALCITRIOL
     Dosage: 0.25 MICROGRAM, QD (EVERY 24 HOURS)
     Route: 065
  27. CALCITRIOL [Concomitant]
     Active Substance: CALCITRIOL
     Dosage: 0.25 MICROGRAM, QD (EVERY 24 HOURS)
     Route: 065
  28. CALCITRIOL [Concomitant]
     Active Substance: CALCITRIOL
     Dosage: 0.25 MICROGRAM, QD (EVERY 24 HOURS)
  29. CALCIUM\VITAMIN D [Concomitant]
     Active Substance: CALCIUM\VITAMIN D
     Dosage: UNK, QD ( 600/400 MG EVERY 24 HOURS)
  30. CALCIUM\VITAMIN D [Concomitant]
     Active Substance: CALCIUM\VITAMIN D
     Dosage: UNK, QD ( 600/400 MG EVERY 24 HOURS)
     Route: 065
  31. CALCIUM\VITAMIN D [Concomitant]
     Active Substance: CALCIUM\VITAMIN D
     Dosage: UNK, QD ( 600/400 MG EVERY 24 HOURS)
     Route: 065
  32. CALCIUM\VITAMIN D [Concomitant]
     Active Substance: CALCIUM\VITAMIN D
     Dosage: UNK, QD ( 600/400 MG EVERY 24 HOURS)
  33. ZINC SULFATE [Concomitant]
     Active Substance: ZINC SULFATE
     Dosage: 5 MILLILITER, BID (EVERY 12 HOURS)
  34. ZINC SULFATE [Concomitant]
     Active Substance: ZINC SULFATE
     Dosage: 5 MILLILITER, BID (EVERY 12 HOURS)
     Route: 065
  35. ZINC SULFATE [Concomitant]
     Active Substance: ZINC SULFATE
     Dosage: 5 MILLILITER, BID (EVERY 12 HOURS)
     Route: 065
  36. ZINC SULFATE [Concomitant]
     Active Substance: ZINC SULFATE
     Dosage: 5 MILLILITER, BID (EVERY 12 HOURS)
  37. UNSPECIFIED INGREDIENT [Concomitant]
     Active Substance: UNSPECIFIED INGREDIENT
  38. UNSPECIFIED INGREDIENT [Concomitant]
     Active Substance: UNSPECIFIED INGREDIENT
     Route: 065
  39. UNSPECIFIED INGREDIENT [Concomitant]
     Active Substance: UNSPECIFIED INGREDIENT
     Route: 065
  40. UNSPECIFIED INGREDIENT [Concomitant]
     Active Substance: UNSPECIFIED INGREDIENT
  41. SODIUM BICARBONATE [Concomitant]
     Active Substance: SODIUM BICARBONATE
     Dosage: UNK, QD (6 CC EVERY 24 HOURS)
  42. SODIUM BICARBONATE [Concomitant]
     Active Substance: SODIUM BICARBONATE
     Dosage: UNK, QD (6 CC EVERY 24 HOURS)
  43. SODIUM BICARBONATE [Concomitant]
     Active Substance: SODIUM BICARBONATE
     Dosage: UNK, QD (6 CC EVERY 24 HOURS)
     Route: 065
  44. SODIUM BICARBONATE [Concomitant]
     Active Substance: SODIUM BICARBONATE
     Dosage: UNK, QD (6 CC EVERY 24 HOURS)
     Route: 065
  45. SODIUM BICARBONATE [Concomitant]
     Active Substance: SODIUM BICARBONATE
     Dosage: UNK, QD (5CC EVERY 24 HOURS)
  46. SODIUM BICARBONATE [Concomitant]
     Active Substance: SODIUM BICARBONATE
     Dosage: UNK, QD (5CC EVERY 24 HOURS)
  47. SODIUM BICARBONATE [Concomitant]
     Active Substance: SODIUM BICARBONATE
     Dosage: UNK, QD (5CC EVERY 24 HOURS)
     Route: 065
  48. SODIUM BICARBONATE [Concomitant]
     Active Substance: SODIUM BICARBONATE
     Dosage: UNK, QD (5CC EVERY 24 HOURS)
     Route: 065
  49. ALUMINUM HYDROXIDE [Concomitant]
     Active Substance: ALUMINUM HYDROXIDE
  50. ALUMINUM HYDROXIDE [Concomitant]
     Active Substance: ALUMINUM HYDROXIDE
     Route: 065
  51. ALUMINUM HYDROXIDE [Concomitant]
     Active Substance: ALUMINUM HYDROXIDE
     Route: 065
  52. ALUMINUM HYDROXIDE [Concomitant]
     Active Substance: ALUMINUM HYDROXIDE
  53. SIMETHICONE (DIMETHICONE) [Concomitant]
     Active Substance: DIMETHICONE
  54. SIMETHICONE (DIMETHICONE) [Concomitant]
     Active Substance: DIMETHICONE
     Route: 065
  55. SIMETHICONE (DIMETHICONE) [Concomitant]
     Active Substance: DIMETHICONE
     Route: 065
  56. SIMETHICONE (DIMETHICONE) [Concomitant]
     Active Substance: DIMETHICONE

REACTIONS (3)
  - Chronic kidney disease [Unknown]
  - Renal tubular disorder [Unknown]
  - Amino acid level increased [Not Recovered/Not Resolved]

NARRATIVE: CASE EVENT DATE: 20230201
